FAERS Safety Report 18334277 (Version 8)
Quarter: 2024Q1

REPORT INFORMATION
  Report Type: Spontaneous
  Country: DE (occurrence: DE)
  Receive Date: 20201001
  Receipt Date: 20240112
  Transmission Date: 20240410
  Serious: Yes (Disabling, Other)
  Sender: FDA-Public Use
  Company Number: DE-FRESENIUS KABI-FK202009713

PATIENT
  Age: 33 Year
  Sex: Male
  Weight: 83 kg

DRUGS (13)
  1. SEVOFLURANE [Suspect]
     Active Substance: SEVOFLURANE
     Indication: Surgery
     Route: 055
     Dates: start: 20190819, end: 20190819
  2. HALDOL [Suspect]
     Active Substance: HALOPERIDOL
     Indication: Surgery
     Dosage: HALDOL-JANSSEN DECANOATE DEPOT?1 TOTAL
     Route: 065
  3. FENTANYL [Suspect]
     Active Substance: FENTANYL\FENTANYL CITRATE
     Indication: Surgery
     Dosage: 1 TOTAL
     Route: 065
  4. MIVACRON [Suspect]
     Active Substance: MIVACURIUM CHLORIDE
     Indication: Surgery
     Dosage: TIME INTERVAL: TOTAL: 1 TOTAL
     Route: 065
     Dates: start: 20190819
  5. ONDANSETRON [Suspect]
     Active Substance: ONDANSETRON
     Indication: Surgery
     Route: 065
     Dates: start: 20190819
  6. DICLOFENAC [Suspect]
     Active Substance: DICLOFENAC
     Indication: Surgery
     Route: 065
     Dates: start: 20190818, end: 20190902
  7. AMIKACIN SULFATE [Suspect]
     Active Substance: AMIKACIN SULFATE
     Indication: Product used for unknown indication
     Route: 065
  8. PROPOFOL [Suspect]
     Active Substance: PROPOFOL
     Indication: Anaesthesia
     Route: 042
     Dates: start: 20190819, end: 20190819
  9. PROPOFOL [Suspect]
     Active Substance: PROPOFOL
     Indication: Anaesthesia
     Route: 042
     Dates: start: 20190820, end: 20190820
  10. PIRITRAMIDE [Suspect]
     Active Substance: PIRITRAMIDE
     Indication: Surgery
     Dosage: 1 TOTAL
     Route: 065
  11. DEXAMETHASONE [Suspect]
     Active Substance: DEXAMETHASONE
     Indication: Surgery
     Route: 065
     Dates: start: 20190819
  12. METAMIZOLE [Suspect]
     Active Substance: METAMIZOLE
     Indication: Product used for unknown indication
     Route: 065
     Dates: start: 20190819
  13. HALOPERIDOL DECANOATE [Suspect]
     Active Substance: HALOPERIDOL DECANOATE
     Indication: Surgery
     Route: 065

REACTIONS (25)
  - Cardiovascular disorder [Not Recovered/Not Resolved]
  - General physical health deterioration [Not Recovered/Not Resolved]
  - Performance status decreased [Not Recovered/Not Resolved]
  - Heart rate increased [Not Recovered/Not Resolved]
  - Dyspnoea [Not Recovered/Not Resolved]
  - Impaired work ability [Not Recovered/Not Resolved]
  - Asthenia [Not Recovered/Not Resolved]
  - Oropharyngeal discomfort [Not Recovered/Not Resolved]
  - Visual impairment [Not Recovered/Not Resolved]
  - Somnolence [Not Recovered/Not Resolved]
  - Chest pain [Not Recovered/Not Resolved]
  - Flatulence [Not Recovered/Not Resolved]
  - Oropharyngeal pain [Not Recovered/Not Resolved]
  - Speech disorder [Not Recovered/Not Resolved]
  - Vision blurred [Not Recovered/Not Resolved]
  - Weight bearing difficulty [Not Recovered/Not Resolved]
  - Dizziness [Not Recovered/Not Resolved]
  - Hyperventilation [Not Recovered/Not Resolved]
  - Chest discomfort [Not Recovered/Not Resolved]
  - Decreased activity [Not Recovered/Not Resolved]
  - Gastrointestinal disorder [Not Recovered/Not Resolved]
  - Nausea [Unknown]
  - Asthenia [Unknown]
  - Blood pressure abnormal [Not Recovered/Not Resolved]
  - Off label use [Unknown]

NARRATIVE: CASE EVENT DATE: 20190818
